FAERS Safety Report 9250397 (Version 2)
Quarter: 2013Q2

REPORT INFORMATION
  Report Type: Spontaneous
  Country: US (occurrence: US)
  Receive Date: 20130424
  Receipt Date: 20130524
  Transmission Date: 20140414
  Serious: No
  Sender: FDA-Public Use
  Company Number: US-009507513-1304USA012708

PATIENT
  Age: 29 Year
  Sex: Female
  Weight: 48.73 kg

DRUGS (3)
  1. PREGNYL [Suspect]
     Indication: INFERTILITY
     Dosage: 5000 USP UNITS, CYCLICAL
     Route: 030
     Dates: start: 20130416
  2. FOLLISTIM [Concomitant]
  3. LUPRON [Concomitant]

REACTIONS (2)
  - Drug ineffective [Unknown]
  - Product quality issue [Unknown]
